FAERS Safety Report 19995530 (Version 2)
Quarter: 2025Q4

REPORT INFORMATION
  Report Type: Spontaneous
  Country: US (occurrence: None)
  Receive Date: 20211026
  Receipt Date: 20251226
  Transmission Date: 20260118
  Serious: Yes (Other)
  Sender: AUROBINDO
  Company Number: US-MLMSERVICE-20211004-3107300-1

PATIENT
  Age: 75 Year
  Sex: Female

DRUGS (16)
  1. BUSPIRONE [Suspect]
     Active Substance: BUSPIRONE HYDROCHLORIDE
     Indication: Anxiety
     Dosage: UNK
     Route: 065
  2. GLIMEPIRIDE [Suspect]
     Active Substance: GLIMEPIRIDE
     Indication: Product used for unknown indication
     Dosage: UNK
     Route: 065
  3. DULAGLUTIDE [Suspect]
     Active Substance: DULAGLUTIDE
     Indication: Product used for unknown indication
     Dosage: 0.75 MILLIGRAM, EVERY WEEK
  4. DULAGLUTIDE [Suspect]
     Active Substance: DULAGLUTIDE
     Dosage: 30 MILLIGRAM, DAILY
     Route: 065
  5. diltiazem 66 [Concomitant]
     Indication: Atrial fibrillation
     Dosage: UNK
  6. duloxetine 66 77 [Concomitant]
     Indication: Anxiety
     Dosage: 60 MILLIGRAM, ONCE A DAY
  7. flecainide 66 [Concomitant]
     Indication: Product used for unknown indication
     Dosage: UNK
     Route: 065
  8. furosemide66 [Concomitant]
     Indication: Acute kidney injury
     Dosage: UNK
     Route: 065
  9. insulin degludec 55 [Concomitant]
     Indication: Type 2 diabetes mellitus
     Dosage: UNK
     Route: 065
  10. labetalol66 [Concomitant]
     Indication: Atrial fibrillation
     Dosage: UNK
     Route: 065
  11. lisinopril 66 [Concomitant]
     Indication: Acute kidney injury
     Dosage: UNK
     Route: 065
  12. metoprolol 66 [Concomitant]
     Indication: Product used for unknown indication
     Dosage: UNK
     Route: 065
  13. metoprolol 66 [Concomitant]
     Dosage: 2.5 MILLIGRAM, TWO TIMES A DAY
     Route: 065
  14. METFORMIN [Concomitant]
     Active Substance: METFORMIN HYDROCHLORIDE
     Indication: Type 2 diabetes mellitus
     Dosage: UNK
     Route: 065
  15. potassium 66 [Concomitant]
     Indication: Acute kidney injury
     Dosage: UNK
     Route: 065
  16. rivaroxaban 66 [Concomitant]
     Indication: Product used for unknown indication
     Dosage: UNK
     Route: 065

REACTIONS (2)
  - Hypoglycaemia [Recovered/Resolved]
  - Increased appetite [Unknown]
